APPROVED DRUG PRODUCT: INDOMETHACIN
Active Ingredient: INDOMETHACIN
Strength: 25MG
Dosage Form/Route: CAPSULE;ORAL
Application: A070067 | Product #001
Applicant: MUTUAL PHARMACEUTICAL CO INC
Approved: Oct 3, 1986 | RLD: No | RS: No | Type: DISCN